FAERS Safety Report 10488123 (Version 1)
Quarter: 2014Q4

REPORT INFORMATION
  Report Type: Report from Study
  Country: US (occurrence: US)
  Receive Date: 20141002
  Receipt Date: 20141002
  Transmission Date: 20150528
  Serious: Yes (Other)
  Sender: FDA-Public Use
  Company Number: US-ROCHE-1467406

PATIENT
  Age: 8 Year
  Sex: Female
  Weight: 20.5 kg

DRUGS (3)
  1. NUTROPIN AQ [Suspect]
     Active Substance: SOMATROPIN
     Indication: BODY HEIGHT BELOW NORMAL
     Route: 058
     Dates: start: 201112
  2. DITROPAN [Concomitant]
     Active Substance: OXYBUTYNIN CHLORIDE
     Indication: BLADDER SPASM
     Route: 065
  3. VITAMIN D3 [Concomitant]
     Active Substance: CHOLECALCIFEROL

REACTIONS (11)
  - Scoliosis [Unknown]
  - Muscle atrophy [Unknown]
  - Blood glucose decreased [Unknown]
  - Enuresis [Unknown]
  - Encopresis [Unknown]
  - Scoliosis [Unknown]
  - Muscular weakness [Unknown]
  - Areflexia [Unknown]
  - Gait disturbance [Unknown]
  - Pain [Unknown]
  - Peripheral swelling [Recovered/Resolved]

NARRATIVE: CASE EVENT DATE: 201302
